FAERS Safety Report 8841436 (Version 2)
Quarter: 2012Q4

REPORT INFORMATION
  Report Type: 
  Country: US (occurrence: US)
  Receive Date: 20121016
  Receipt Date: 20121113
  Transmission Date: 20130627
  Serious: Yes (Other)
  Sender: FDA-Public Use
  Company Number: US-MERCK-1210USA005533

PATIENT
  Age: 62 Year
  Sex: Female

DRUGS (2)
  1. JANUMET [Suspect]
     Indication: DIABETES MELLITUS
     Dosage: 500mg/50mg
     Route: 048
  2. LISINOPRIL [Suspect]
     Route: 048

REACTIONS (1)
  - Renal failure acute [Unknown]
